FAERS Safety Report 5113427-X (Version None)
Quarter: 2006Q3

REPORT INFORMATION
  Report Type: 
  Country: None (occurrence: None)
  Receive Date: 20060921
  Receipt Date: 20060921
  Transmission Date: 20061208
  Serious: Yes (Hospitalization)
  Sender: FDA-Public Use
  Company Number: None

PATIENT
  Age: 13 Year
  Sex: Male
  Weight: 26 kg

DRUGS (9)
  1. REMODULIN [Suspect]
     Indication: PULMONARY HYPERTENSION
     Dosage: 55NG/KG/MIN AT 0 645ML/HR   CONTINOUS  IV DRIP
     Route: 041
     Dates: start: 20050801, end: 20060920
  2. LASIX [Concomitant]
  3. DIGOXIN [Concomitant]
  4. ACTIGALL [Concomitant]
  5. IMURAN [Concomitant]
  6. COUMADIN [Concomitant]
  7. SILDENAFIL [Concomitant]
  8. IRON [Concomitant]
  9. MULTI-VITAMIN [Concomitant]

REACTIONS (3)
  - CELLULITIS [None]
  - SEPSIS [None]
  - STENOTROPHOMONAS INFECTION [None]
